FAERS Safety Report 4549361-3 (Version None)
Quarter: 2005Q1

REPORT INFORMATION
  Report Type: 
  Country: None (occurrence: None)
  Receive Date: 20050110
  Receipt Date: 20050110
  Transmission Date: 20050727
  Serious: Yes (Disabling)
  Sender: FDA-Public Use
  Company Number: None

PATIENT
  Age: 37 Year
  Sex: Female
  Weight: 54.4316 kg

DRUGS (2)
  1. SOLU-MEDROL [Suspect]
     Indication: MOVEMENT DISORDER
     Dosage: IV
     Route: 042
     Dates: start: 20041001
  2. SOLU-MEDROL [Suspect]
     Indication: PAIN IN EXTREMITY
     Dosage: IV
     Route: 042
     Dates: start: 20041001

REACTIONS (13)
  - ABDOMINAL PAIN [None]
  - AMENORRHOEA [None]
  - BACK PAIN [None]
  - BLOOD PRESSURE INCREASED [None]
  - CHEST DISCOMFORT [None]
  - DEPRESSION [None]
  - DIFFICULTY IN WALKING [None]
  - DRUG HYPERSENSITIVITY [None]
  - DYSPNOEA [None]
  - INFUSION RELATED REACTION [None]
  - LIBIDO DECREASED [None]
  - PHARYNGOLARYNGEAL PAIN [None]
  - URINARY TRACT INFECTION [None]
